FAERS Safety Report 7988824-5 (Version None)
Quarter: 2011Q4

REPORT INFORMATION
  Report Type: 
  Country: None (occurrence: None)
  Receive Date: 20111215
  Receipt Date: 20111215
  Transmission Date: 20120403
  Serious: Yes (Other)
  Sender: FDA-Public Use
  Company Number: None

PATIENT
  Age: 86 Year
  Sex: Female

DRUGS (12)
  1. REVLIMID [Suspect]
     Indication: MULTIPLE MYELOMA
     Dosage: 5 MG DAILY X21D/28D ORALLY
     Route: 048
     Dates: start: 20101001
  2. ETODOLAC [Concomitant]
  3. OXYCODONE HCL [Concomitant]
  4. ASPIRIN [Concomitant]
  5. GLIPIZIDE [Concomitant]
  6. PAROXETINE HCL [Concomitant]
  7. LEVOTHROID [Concomitant]
  8. OMEPRAZOLE [Concomitant]
  9. ZOLPIDEM [Concomitant]
  10. LORAZEPAM [Concomitant]
  11. METFORMIN HCL [Concomitant]
  12. LOSARTAN POTASSIUM [Concomitant]

REACTIONS (3)
  - DIARRHOEA [None]
  - ACNE [None]
  - RASH [None]
